FAERS Safety Report 6724527-2 (Version None)
Quarter: 2010Q2

REPORT INFORMATION
  Report Type: 
  Country: None (occurrence: None)
  Receive Date: 20100513
  Receipt Date: 20100503
  Transmission Date: 20101027
  Serious: Yes (Other)
  Sender: FDA-Public Use
  Company Number: US-PFIZER INC-2010056273

PATIENT
  Sex: Female

DRUGS (1)
  1. NORPACE [Suspect]
     Indication: SYNCOPE
     Dosage: 150 MG, 3X/DAY
     Route: 048

REACTIONS (2)
  - URINARY TRACT INFECTION [None]
  - VISION BLURRED [None]
